FAERS Safety Report 6319321-0 (Version None)
Quarter: 2009Q3

REPORT INFORMATION
  Report Type: 
  Country: None (occurrence: None)
  Receive Date: 20090821
  Receipt Date: 20080827
  Transmission Date: 20100115
  Serious: No
  Sender: FDA-Public Use
  Company Number: US-ABBOTT-08P-163-0472739-00

PATIENT
  Sex: Male
  Weight: 59.02 kg

DRUGS (4)
  1. NIASPAN [Suspect]
     Indication: BLOOD CHOLESTEROL INCREASED
     Route: 048
     Dates: start: 20060401, end: 20061101
  2. NIASPAN [Suspect]
     Indication: BLOOD TRIGLYCERIDES INCREASED
     Route: 048
     Dates: start: 20061101
  3. FEXOFENADINE [Concomitant]
     Indication: HYPERSENSITIVITY
  4. NASQUAT [Concomitant]
     Indication: HYPERSENSITIVITY
     Route: 045

REACTIONS (2)
  - FLUSHING [None]
  - MIDDLE INSOMNIA [None]
